FAERS Safety Report 17894021 (Version 3)
Quarter: 2021Q2

REPORT INFORMATION
  Report Type: Spontaneous
  Country: US (occurrence: US)
  Receive Date: 20200615
  Receipt Date: 20210622
  Transmission Date: 20210717
  Serious: Yes (Other)
  Sender: FDA-Public Use
  Company Number: US-GILEAD-2020-0470809

PATIENT
  Age: 48 Year
  Sex: Male
  Weight: 85.71 kg

DRUGS (23)
  1. ACETAMINOPHEN W/OXYCODONE [Concomitant]
     Active Substance: ACETAMINOPHEN\OXYCODONE HYDROCHLORIDE
  2. HYDROCHLOROTHIAZIDE. [Concomitant]
     Active Substance: HYDROCHLOROTHIAZIDE
  3. NORVIR [Concomitant]
     Active Substance: RITONAVIR
  4. MIRTAZAPINE. [Concomitant]
     Active Substance: MIRTAZAPINE
  5. BACTRIM [Concomitant]
     Active Substance: SULFAMETHOXAZOLE\TRIMETHOPRIM
  6. PRAVASTATIN. [Concomitant]
     Active Substance: PRAVASTATIN
  7. AZITHROMYCIN ANHYDROUS. [Concomitant]
     Active Substance: AZITHROMYCIN ANHYDROUS
  8. AMITRIPTYLINE [Concomitant]
     Active Substance: AMITRIPTYLINE
  9. PREDNISONE. [Concomitant]
     Active Substance: PREDNISONE
  10. PROZAC [Concomitant]
     Active Substance: FLUOXETINE HYDROCHLORIDE
  11. KALETRA [Concomitant]
     Active Substance: LOPINAVIR\RITONAVIR
  12. SMZ?TMP DS [Concomitant]
     Active Substance: SULFAMETHOXAZOLE\TRIMETHOPRIM
  13. BUPROPION. [Concomitant]
     Active Substance: BUPROPION
  14. PREZISTA [Concomitant]
     Active Substance: DARUNAVIR ETHANOLATE
  15. REYATAZ [Concomitant]
     Active Substance: ATAZANAVIR SULFATE
  16. GABAPENTIN. [Concomitant]
     Active Substance: GABAPENTIN
  17. OXYCODONE [Concomitant]
     Active Substance: OXYCODONE
  18. NEXIUM I.V. [Concomitant]
     Active Substance: ESOMEPRAZOLE SODIUM
  19. TRIHEXYPHENIDYL [Concomitant]
     Active Substance: TRIHEXYPHENIDYL
  20. TRUVADA [Suspect]
     Active Substance: EMTRICITABINE\TENOFOVIR DISOPROXIL FUMARATE
     Indication: HIV INFECTION
     Dosage: UNK
     Route: 048
     Dates: start: 200607, end: 201609
  21. DESCOVY [Concomitant]
     Active Substance: EMTRICITABINE\TENOFOVIR ALAFENAMIDE FUMARATE
  22. SUSTIVA [Concomitant]
     Active Substance: EFAVIRENZ
  23. NICOTINE. [Concomitant]
     Active Substance: NICOTINE

REACTIONS (8)
  - Multiple fractures [Unknown]
  - Bone density decreased [Unknown]
  - Osteoporosis [Not Recovered/Not Resolved]
  - Emotional distress [Unknown]
  - Bone loss [Unknown]
  - Tooth loss [Recovered/Resolved]
  - Osteonecrosis [Not Recovered/Not Resolved]
  - Pain [Unknown]

NARRATIVE: CASE EVENT DATE: 200805
